FAERS Safety Report 5455465-3 (Version None)
Quarter: 2007Q3

REPORT INFORMATION
  Report Type: 
  Country: None (occurrence: None)
  Receive Date: 20070918
  Receipt Date: 20070228
  Transmission Date: 20080115
  Serious: Yes (Other)
  Sender: FDA-Public Use
  Company Number: US-ASTRAZENECA-2006UW21258

PATIENT
  Sex: Female
  Weight: 106.8 kg

DRUGS (2)
  1. SEROQUEL [Suspect]
     Route: 048
     Dates: end: 20060301
  2. ABILIFY [Concomitant]
     Dates: start: 20060215

REACTIONS (1)
  - TARDIVE DYSKINESIA [None]
